FAERS Safety Report 10082770 (Version 1)
Quarter: 2014Q2

REPORT INFORMATION
  Report Type: Spontaneous
  Country: US (occurrence: US)
  Receive Date: 20140416
  Receipt Date: 20140416
  Transmission Date: 20141212
  Serious: No
  Sender: FDA-Public Use
  Company Number: US-ALLERGAN-1314066US

PATIENT
  Sex: Female

DRUGS (2)
  1. ZYMAXID [Suspect]
     Indication: POSTOPERATIVE CARE
     Dosage: 1 GTT, UNK
     Route: 047
     Dates: start: 20130910, end: 20130910
  2. STEROID EYE DROP [Concomitant]
     Indication: POSTOPERATIVE CARE
     Dosage: 1 GTT, Q2HR
     Route: 047
     Dates: start: 20130910

REACTIONS (2)
  - Foreign body sensation in eyes [Recovering/Resolving]
  - Eye irritation [Recovering/Resolving]
